FAERS Safety Report 24358095 (Version 1)
Quarter: 2024Q3

REPORT INFORMATION
  Report Type: Report from Study
  Country: CA (occurrence: CA)
  Receive Date: 20240924
  Receipt Date: 20240924
  Transmission Date: 20241017
  Serious: Yes (Hospitalization, Other)
  Sender: ABBVIE
  Company Number: CA-ABBVIE-5929975

PATIENT
  Sex: Male

DRUGS (1)
  1. RINVOQ [Suspect]
     Active Substance: UPADACITINIB
     Indication: Ankylosing spondylitis
     Dosage: FORM STRENGTH: 15 MG
     Route: 048
     Dates: start: 20230713

REACTIONS (5)
  - Kidney infection [Unknown]
  - Nephrolithiasis [Unknown]
  - Therapeutic product effect incomplete [Unknown]
  - Pain [Unknown]
  - Swelling [Unknown]
